FAERS Safety Report 4845735-1 (Version None)
Quarter: 2005Q4

REPORT INFORMATION
  Report Type: 
  Country: None (occurrence: None)
  Receive Date: 20051206
  Receipt Date: 20051129
  Transmission Date: 20060501
  Serious: Yes (Other)
  Sender: FDA-Public Use
  Company Number: US-JNJFOC-20051001245

PATIENT
  Sex: Male
  Weight: 77.11 kg

DRUGS (22)
  1. VIADUR [Suspect]
     Indication: PROSTATE CANCER
     Route: 058
  2. TYLENOL [Concomitant]
     Route: 048
  3. SAW PALMETTO [Concomitant]
  4. ZYRTEC-D 12 HOUR [Concomitant]
  5. NEXIUM [Concomitant]
  6. MULTI-VITAMINS [Concomitant]
  7. MULTI-VITAMINS [Concomitant]
  8. MULTI-VITAMINS [Concomitant]
  9. MULTI-VITAMINS [Concomitant]
  10. MULTI-VITAMINS [Concomitant]
  11. MULTI-VITAMINS [Concomitant]
  12. MULTI-VITAMINS [Concomitant]
  13. MULTI-VITAMINS [Concomitant]
  14. PLAVIX [Concomitant]
  15. SYNTHROID [Concomitant]
  16. ZOCOR [Concomitant]
  17. FLONASE [Concomitant]
  18. IMODIUM [Concomitant]
     Dosage: AS NEEDED.
  19. IPRATROPIUM BROMIDE [Concomitant]
  20. ALBUTEROL [Concomitant]
     Route: 055
  21. PULMICORT [Concomitant]
     Route: 055
  22. NEBULIZER [Concomitant]

REACTIONS (6)
  - ASTHENIA [None]
  - COUGH [None]
  - HALLUCINATION [None]
  - OEDEMA PERIPHERAL [None]
  - PARAESTHESIA [None]
  - TREMOR [None]
